FAERS Safety Report 24641368 (Version 1)
Quarter: 2024Q4

REPORT INFORMATION
  Report Type: Spontaneous
  Country: US (occurrence: None)
  Receive Date: 20241119
  Receipt Date: 20241119
  Transmission Date: 20250114
  Serious: Yes (Life-Threatening, Hospitalization, Disabling)
  Sender: Public
  Company Number: None

PATIENT
  Age: 61 Year
  Sex: Female

DRUGS (1)
  1. REPATHA [Suspect]
     Active Substance: EVOLOCUMAB
     Indication: Hyperlipidaemia
     Dosage: 140MG EVERY 14 DAYS SUBCUTANEOUS?
     Route: 058
     Dates: start: 20221122

REACTIONS (3)
  - Myocardial infarction [None]
  - Type IIa hyperlipidaemia [None]
  - Nonspecific reaction [None]

NARRATIVE: CASE EVENT DATE: 20240804
